FAERS Safety Report 9001238 (Version 1)
Quarter: 2013Q1

REPORT INFORMATION
  Report Type: Spontaneous
  Country: IR (occurrence: IR)
  Receive Date: 20130107
  Receipt Date: 20130107
  Transmission Date: 20140127
  Serious: Yes (Other)
  Sender: FDA-Public Use
  Company Number: IR-CELGENEUS-080-20785-12122819

PATIENT
  Sex: 0

DRUGS (9)
  1. THALIDOMIDE [Suspect]
     Indication: PLASMA CELL MYELOMA RECURRENT
     Dosage: 100 MILLIGRAM
     Route: 048
  2. BORTEZOMIB [Concomitant]
     Indication: PLASMA CELL MYELOMA RECURRENT
     Route: 065
  3. BORTEZOMIB [Concomitant]
     Route: 065
  4. MELPHALAN [Concomitant]
     Indication: PLASMA CELL MYELOMA RECURRENT
     Dosage: 5 MILLIGRAM
     Route: 048
  5. DEXAMETHASONE [Concomitant]
     Indication: PLASMA CELL MYELOMA RECURRENT
     Dosage: 24 MILLIGRAM
     Route: 065
  6. DEXAMETHASONE [Concomitant]
     Dosage: ON THE DAY OF BORTEZOMIB INJECTION AND THE DAY THEREAFTER
     Route: 041
  7. ACICLOVIR [Concomitant]
     Indication: ANTIVIRAL PROPHYLAXIS
     Dosage: 1600 MILLIGRAM
     Route: 065
  8. AMANTADINE [Concomitant]
     Indication: ANTIVIRAL PROPHYLAXIS
     Route: 065
  9. ERYTHROPOIETIN [Concomitant]
     Indication: ANAEMIA
     Route: 058

REACTIONS (18)
  - Cardiovascular disorder [Unknown]
  - Haemorrhage [Unknown]
  - Respiratory tract infection [Unknown]
  - Embolism [Unknown]
  - Myopathy [Unknown]
  - Liver function test [Unknown]
  - Infection [Unknown]
  - Thrombocytopenia [Unknown]
  - Leukopenia [Unknown]
  - Fatigue [Unknown]
  - Neuropathy peripheral [Unknown]
  - Dyspnoea [Unknown]
  - Oedema [Unknown]
  - Hypotension [Unknown]
  - Diarrhoea [Unknown]
  - Mood altered [Unknown]
  - Herpes zoster [Unknown]
  - Anaemia [Unknown]
